FAERS Safety Report 4923829-X (Version None)
Quarter: 2006Q1

REPORT INFORMATION
  Report Type: 
  Country: None (occurrence: None)
  Receive Date: 20060224
  Receipt Date: 20060224
  Transmission Date: 20060701
  Serious: Yes (Hospitalization)
  Sender: FDA-Public Use
  Company Number: None

PATIENT
  Age: 79 Year
  Sex: Female
  Weight: 71 kg

DRUGS (1)
  1. METHOTREXATE [Suspect]
     Indication: RHEUMATOID ARTHRITIS
     Dosage: 10 MG WEEKLY IM
     Route: 030
     Dates: start: 20050823, end: 20051123

REACTIONS (13)
  - ANURIA [None]
  - ASTHENIA [None]
  - BRAIN NATRIURETIC PEPTIDE INCREASED [None]
  - CHILLS [None]
  - DYSPNOEA [None]
  - FATIGUE [None]
  - IMMUNOSUPPRESSION [None]
  - LUNG INFILTRATION [None]
  - LUNG INJURY [None]
  - MALAISE [None]
  - PYREXIA [None]
  - RENAL FAILURE [None]
  - SHIFT TO THE LEFT [None]
